FAERS Safety Report 5536802-8 (Version None)
Quarter: 2007Q4

REPORT INFORMATION
  Report Type: 
  Country: None (occurrence: None)
  Receive Date: 20071204
  Receipt Date: 20071119
  Transmission Date: 20080405
  Serious: Yes (Hospitalization)
  Sender: FDA-Public Use
  Company Number: 2007SP023198

PATIENT
  Sex: Male
  Weight: 1.61 kg

DRUGS (2)
  1. SUBUTEX [Suspect]
     Indication: DRUG DEPENDENCE
     Dosage: TRPL
     Route: 064
  2. CELESTONE [Suspect]
     Indication: PREMATURE LABOUR
     Dates: start: 20070212, end: 20070213

REACTIONS (5)
  - CAESAREAN SECTION [None]
  - DRUG EXPOSURE DURING PREGNANCY [None]
  - FOETAL ARRHYTHMIA [None]
  - OLIGOHYDRAMNIOS [None]
  - PREMATURE BABY [None]
